FAERS Safety Report 6128711-0 (Version None)
Quarter: 2009Q1

REPORT INFORMATION
  Report Type: 
  Country: None (occurrence: None)
  Receive Date: 20090323
  Receipt Date: 20090311
  Transmission Date: 20090719
  Serious: Yes (Life-Threatening, Hospitalization)
  Sender: FDA-Public Use
  Company Number: FR-PFIZER INC-2009157659

PATIENT

DRUGS (8)
  1. TRIFLUCAN [Suspect]
     Dosage: FREQUENCY: EVERY DAY;
     Route: 048
  2. CEFOTAXIME [Suspect]
     Dosage: FREQUENCY: EVERY 3 DAYS;
     Route: 048
     Dates: start: 20080612
  3. CIPROFLOXACIN [Suspect]
     Dosage: FREQUENCY: EVERY DAY;
     Route: 048
     Dates: start: 20080613
  4. GENTAMICIN SULFATE [Suspect]
     Dates: start: 20080612, end: 20080613
  5. APROVEL [Concomitant]
  6. VASTAREL [Concomitant]
  7. IMOVANE [Concomitant]
  8. PROPOFAN [Concomitant]

REACTIONS (3)
  - CLOSTRIDIUM DIFFICILE COLITIS [None]
  - DIARRHOEA [None]
  - HYPOKALAEMIA [None]
